FAERS Safety Report 4533966-X (Version None)
Quarter: 2004Q4

REPORT INFORMATION
  Report Type: 
  Country: None (occurrence: None)
  Receive Date: 20041221
  Receipt Date: 20041221
  Transmission Date: 20050328
  Serious: No
  Sender: FDA-Public Use
  Company Number: None

PATIENT
  Age: 22 Year
  Sex: Male

DRUGS (4)
  1. AMIKIN [Suspect]
     Indication: WOUND INFECTION
     Dosage: INTRAVENOUS; 1000.0
     Route: 042
     Dates: start: 20041103, end: 20041112
  2. ZOSYN [Concomitant]
  3. POLYMIXIN B [Concomitant]
  4. VANCOMYCIN [Concomitant]

REACTIONS (8)
  - ACINETOBACTER INFECTION [None]
  - HYPOTENSION [None]
  - NEPHRITIS INTERSTITIAL [None]
  - NEPHROPATHY TOXIC [None]
  - RENAL FAILURE ACUTE [None]
  - RHABDOMYOLYSIS [None]
  - TRANSFUSION REACTION [None]
  - WOUND INFECTION [None]
